FAERS Safety Report 14180008 (Version 1)
Quarter: 2017Q4

REPORT INFORMATION
  Report Type: Spontaneous
  Country: US (occurrence: US)
  Receive Date: 20171110
  Receipt Date: 20171110
  Transmission Date: 20180321
  Serious: Yes (Hospitalization)
  Sender: FDA-Public Use
  Company Number: US-BAYER-2017-214527

PATIENT
  Age: 84 Year
  Sex: Female
  Weight: 54 kg

DRUGS (7)
  1. ALEVE [Interacting]
     Active Substance: NAPROXEN SODIUM
     Indication: ARTHRALGIA
     Dosage: 1 DF, QD
     Route: 048
     Dates: end: 201708
  2. ALEVE [Interacting]
     Active Substance: NAPROXEN SODIUM
     Indication: INFLAMMATION
  3. BAYER LOW DOSE [Interacting]
     Active Substance: ASPIRIN
     Dosage: UNK
  4. CRESTOR [Concomitant]
     Active Substance: ROSUVASTATIN CALCIUM
     Dosage: UNK
  5. ALEVE PM [Suspect]
     Active Substance: DIPHENHYDRAMINE HYDROCHLORIDE\NAPROXEN SODIUM
     Indication: ARTHRALGIA
     Dosage: 1 DF, QD
     Route: 048
     Dates: end: 201708
  6. ALEVE PM [Interacting]
     Active Substance: DIPHENHYDRAMINE HYDROCHLORIDE\NAPROXEN SODIUM
     Indication: INFLAMMATION
  7. MULTIVITAMIN [Concomitant]
     Active Substance: VITAMINS
     Dosage: UNK

REACTIONS (5)
  - Contraindicated product administered [None]
  - Product use in unapproved indication [None]
  - Product use issue [Unknown]
  - Labelled drug-drug interaction medication error [None]
  - Gastric ulcer haemorrhage [Unknown]

NARRATIVE: CASE EVENT DATE: 201708
